FAERS Safety Report 12730377 (Version 1)
Quarter: 2016Q3

REPORT INFORMATION
  Report Type: Spontaneous
  Country: FR (occurrence: FR)
  Receive Date: 20160909
  Receipt Date: 20160909
  Transmission Date: 20161109
  Serious: Yes (Hospitalization, Other)
  Sender: FDA-Public Use
  Company Number: FR-ASTRAZENECA-2016SE95002

PATIENT
  Age: 77 Year
  Sex: Male

DRUGS (4)
  1. TAGRISSO [Suspect]
     Active Substance: OSIMERTINIB
     Indication: BRONCHIAL CARCINOMA
     Route: 048
     Dates: start: 201605, end: 201608
  2. IRESSA [Suspect]
     Active Substance: GEFITINIB
     Indication: BRONCHIAL CARCINOMA
     Route: 048
     Dates: start: 201506, end: 201507
  3. IRESSA [Suspect]
     Active Substance: GEFITINIB
     Indication: BRONCHIAL CARCINOMA
     Route: 048
     Dates: start: 20150910, end: 201605
  4. RADIOTHERAPY [Concomitant]
     Active Substance: RADIATION THERAPY

REACTIONS (4)
  - Radiation injury [Not Recovered/Not Resolved]
  - Encephalopathy [Not Recovered/Not Resolved]
  - Malignant neoplasm progression [Unknown]
  - Metastases to central nervous system [Unknown]

NARRATIVE: CASE EVENT DATE: 201607
